FAERS Safety Report 18438903 (Version 1)
Quarter: 2020Q4

REPORT INFORMATION
  Report Type: Spontaneous
  Country: US (occurrence: US)
  Receive Date: 20201028
  Receipt Date: 20201028
  Transmission Date: 20210114
  Serious: Yes (Other)
  Sender: FDA-Public Use
  Company Number: US-PURDUE-USA-2020-0172329

PATIENT
  Sex: Female

DRUGS (1)
  1. OXYCONTIN [Suspect]
     Active Substance: OXYCODONE HYDROCHLORIDE
     Indication: PRODUCT USED FOR UNKNOWN INDICATION
     Dosage: UNK
     Route: 048
     Dates: start: 2008

REACTIONS (5)
  - Drug dependence [Unknown]
  - Pain [Unknown]
  - Psoriatic arthropathy [Unknown]
  - Systemic lupus erythematosus [Unknown]
  - Abdominal discomfort [Unknown]

NARRATIVE: CASE EVENT DATE: 200806
